FAERS Safety Report 8263729-3 (Version None)
Quarter: 2012Q2

REPORT INFORMATION
  Report Type: 
  Country: None (occurrence: None)
  Receive Date: 20120405
  Receipt Date: 20120327
  Transmission Date: 20120825
  Serious: Yes (Other)
  Sender: FDA-Public Use
  Company Number: US-ABBOTT-12P-163-0903312-00

PATIENT
  Sex: Female
  Weight: 58.4 kg

DRUGS (10)
  1. MULTI-VITAMIN [Concomitant]
     Indication: VITAMIN SUPPLEMENTATION
  2. HUMIRA [Suspect]
  3. VITAMIN D [Concomitant]
     Indication: VITAMIN SUPPLEMENTATION
  4. ORAL CONTRACEPTIVE MEDICATION [Concomitant]
     Indication: PRODUCT USED FOR UNKNOWN INDICATION
  5. HUMIRA [Suspect]
     Dosage: 80 MG LOADING DOSE
     Dates: start: 20110701, end: 20110701
  6. HUMIRA [Suspect]
     Indication: CROHN'S DISEASE
     Dosage: 160 MG LOADING DOSE
     Dates: start: 20110701, end: 20110701
  7. TYLENOL [Concomitant]
     Indication: PAIN
     Dosage: TAKEN AS NEEDED FOR QUITE SOME TIME
     Route: 048
  8. HUMIRA [Suspect]
  9. CALCIUM CARBONATE [Concomitant]
     Indication: MINERAL SUPPLEMENTATION
  10. INFLIXIMAB [Concomitant]
     Indication: POSTOPERATIVE CARE

REACTIONS (34)
  - COUGH [None]
  - BLOOD IRON DECREASED [None]
  - FATIGUE [None]
  - HYPERTONIC BLADDER [None]
  - CONSTIPATION [None]
  - MENTAL DISORDER [None]
  - ABDOMINAL PAIN LOWER [None]
  - NASOPHARYNGITIS [None]
  - COLD SWEAT [None]
  - INCISION SITE PAIN [None]
  - POLLAKIURIA [None]
  - LYMPHADENOPATHY [None]
  - RHINORRHOEA [None]
  - IRON DEFICIENCY [None]
  - FEELING ABNORMAL [None]
  - PYREXIA [None]
  - OEDEMA PERIPHERAL [None]
  - PALLOR [None]
  - POST PROCEDURAL HAEMORRHAGE [None]
  - DEPRESSION [None]
  - INTESTINAL STENOSIS [None]
  - SKIN DISCOLOURATION [None]
  - CHEST PAIN [None]
  - RESPIRATORY TRACT CONGESTION [None]
  - GINGIVAL BLEEDING [None]
  - HYPOAESTHESIA ORAL [None]
  - ABDOMINAL DISTENSION [None]
  - ABNORMAL WEIGHT GAIN [None]
  - HAEMOGLOBIN DECREASED [None]
  - ILEOCOLECTOMY [None]
  - INTESTINAL OBSTRUCTION [None]
  - VOMITING [None]
  - OROPHARYNGEAL PAIN [None]
  - SENSATION OF PRESSURE [None]
